FAERS Safety Report 5159214-8 (Version None)
Quarter: 2006Q4

REPORT INFORMATION
  Report Type: 
  Country: None (occurrence: None)
  Receive Date: 20061128
  Receipt Date: 20061026
  Transmission Date: 20070319
  Serious: Yes (Disabling, Other)
  Sender: FDA-Public Use
  Company Number: US-MERCK-0610USA14280

PATIENT
  Age: 76 Year
  Sex: Male
  Weight: 88 kg

DRUGS (29)
  1. ZETIA [Suspect]
     Indication: BLOOD CHOLESTEROL INCREASED
     Route: 048
     Dates: start: 20060413, end: 20060419
  2. ZETIA [Suspect]
     Indication: HYPERLIPIDAEMIA
     Route: 048
     Dates: start: 20060413, end: 20060419
  3. MAGNESIUM OXIDE [Concomitant]
     Route: 048
  4. POTASSIUM GLUCONATE [Concomitant]
     Route: 048
  5. CALCIUM (UNSPECIFIED) AND VITAMIN D (UNSPECIFIED) [Concomitant]
     Route: 065
  6. FOLIC ACID [Concomitant]
     Route: 065
  7. PANTOTHENIC ACID [Concomitant]
     Route: 065
  8. PANTOTHENIC ACID [Concomitant]
     Route: 065
  9. BETA CAROTENE [Concomitant]
     Route: 065
  10. CHONDROITIN SULFATE SODIUM AND GLUCOSAMINE SULFATE [Concomitant]
     Route: 065
  11. CHONDROITIN SULFATE SODIUM AND GLUCOSAMINE SULFATE [Concomitant]
     Route: 065
  12. GINKGO [Concomitant]
     Route: 065
  13. SAW PALMETTO [Concomitant]
     Route: 065
  14. GARLIC OIL [Concomitant]
     Route: 065
  15. NIACIN [Concomitant]
     Route: 065
  16. XANTHOPHYLL [Concomitant]
     Route: 065
  17. VITAMIN E [Concomitant]
     Route: 065
  18. SELENIUM (UNSPECIFIED) [Concomitant]
     Route: 065
  19. ZINC (UNSPECIFIED) [Concomitant]
     Route: 065
  20. NIACINAMIDE [Concomitant]
     Route: 065
  21. BIOTIN [Concomitant]
     Route: 065
  22. LANOXIN [Concomitant]
     Indication: ATRIAL FIBRILLATION
     Route: 048
     Dates: start: 19970501
  23. CELEBREX [Concomitant]
     Route: 065
  24. TOPROL-XL [Concomitant]
     Indication: ATRIAL FIBRILLATION
     Route: 048
     Dates: start: 20061004
  25. COUMADIN [Concomitant]
     Indication: ATRIAL FIBRILLATION
     Route: 065
     Dates: start: 19970501
  26. COUMADIN [Concomitant]
     Route: 065
     Dates: start: 19970501
  27. THIOCTIC ACID [Concomitant]
     Route: 065
  28. CYANOCOBALAMIN [Concomitant]
     Route: 065
  29. MANGANESE GLUCONATE [Concomitant]
     Route: 065

REACTIONS (2)
  - MUSCULAR WEAKNESS [None]
  - MYALGIA [None]
